FAERS Safety Report 16694979 (Version 6)
Quarter: 2020Q3

REPORT INFORMATION
  Report Type: Report from Study
  Country: US (occurrence: US)
  Receive Date: 20190812
  Receipt Date: 20200819
  Transmission Date: 20201102
  Serious: Yes (Death, Hospitalization)
  Sender: FDA-Public Use
  Company Number: US-ACTELION-A-NJ2019-190696

PATIENT
  Age: 81 Year
  Sex: Female
  Weight: 96.15 kg

DRUGS (7)
  1. UPTRAVI [Suspect]
     Active Substance: SELEXIPAG
     Dosage: 800 MCG, BID
     Route: 048
  2. UPTRAVI [Suspect]
     Active Substance: SELEXIPAG
     Dosage: 200 MCG, BID
     Route: 048
  3. UPTRAVI [Suspect]
     Active Substance: SELEXIPAG
     Indication: PULMONARY ARTERIAL HYPERTENSION
     Dosage: 600 MCG, BID
     Route: 048
  4. REVATIO [Concomitant]
     Active Substance: SILDENAFIL CITRATE
  5. UPTRAVI [Suspect]
     Active Substance: SELEXIPAG
     Dosage: 600 MCG AM, 800 MCG PM
     Route: 048
  6. UPTRAVI [Suspect]
     Active Substance: SELEXIPAG
     Dosage: 800 MCG IN THE PM
     Route: 048
  7. ESBRIET [Concomitant]
     Active Substance: PIRFENIDONE

REACTIONS (12)
  - Death [Fatal]
  - Respiratory disorder [Unknown]
  - Oropharyngeal pain [Unknown]
  - Nausea [Unknown]
  - Candida infection [Unknown]
  - Headache [Unknown]
  - Viral infection [Unknown]
  - Pain [Unknown]
  - Formication [Unknown]
  - Dyspnoea [Unknown]
  - Pneumonia [Unknown]
  - Confusional state [Unknown]

NARRATIVE: CASE EVENT DATE: 20200803
